FAERS Safety Report 6553022-9 (Version None)
Quarter: 2010Q1

REPORT INFORMATION
  Report Type: 
  Country: None (occurrence: None)
  Receive Date: 20100122
  Receipt Date: 20100111
  Transmission Date: 20100710
  Serious: Yes (Other)
  Sender: FDA-Public Use
  Company Number: TPA2010A00111

PATIENT
  Age: 59 Year
  Sex: Female
  Weight: 63.5 kg

DRUGS (12)
  1. PREVACID [Suspect]
     Indication: GASTROOESOPHAGEAL REFLUX DISEASE
     Dosage: 30 MG, 1 IN 1 D, PER ORAL
     Route: 048
     Dates: start: 19900101, end: 20091201
  2. TRIAMTERENCE (TRIAMTERENE) [Concomitant]
  3. PENTOXIFYLLINE [Concomitant]
  4. VERAPAMIL ER (VERAPAMIL) [Concomitant]
  5. MINOCIN [Concomitant]
  6. GABAPENTIN [Concomitant]
  7. ASPIRIN [Concomitant]
  8. FLUOXETINE [Concomitant]
  9. CLONAZEPAM [Concomitant]
  10. CLARITIN [Concomitant]
  11. MS CONTIN [Concomitant]
  12. SILVER SULFADIAZINE (SULFADIAZINE SILVER) [Concomitant]

REACTIONS (3)
  - BREAST CANCER FEMALE [None]
  - ECONOMIC PROBLEM [None]
  - METASTASES TO LYMPH NODES [None]
